FAERS Safety Report 24146534 (Version 2)
Quarter: 2024Q4

REPORT INFORMATION
  Report Type: Spontaneous
  Country: JP (occurrence: JP)
  Receive Date: 20240729
  Receipt Date: 20241023
  Transmission Date: 20250115
  Serious: Yes (Other)
  Sender: BRISTOL-MYERS SQUIBB COMPANY
  Company Number: JP-ONO-2024JP015488

PATIENT
  Age: 59 Year
  Sex: Male

DRUGS (1)
  1. OPDIVO [Suspect]
     Active Substance: NIVOLUMAB
     Indication: Gastric cancer stage IV
     Route: 041

REACTIONS (4)
  - Melaena [Unknown]
  - Jaundice cholestatic [Unknown]
  - Immune-mediated hypothyroidism [Unknown]
  - Encephalitis [Recovering/Resolving]
